FAERS Safety Report 5926980-0 (Version None)
Quarter: 2008Q4

REPORT INFORMATION
  Report Type: 
  Country: None (occurrence: None)
  Receive Date: 20081021
  Receipt Date: 20081021
  Transmission Date: 20090506
  Serious: Yes (Disabling)
  Sender: FDA-Public Use
  Company Number: None

PATIENT
  Age: 28 Year
  Sex: Male
  Weight: 97.5234 kg

DRUGS (1)
  1. NEVANAC UNKNOWN ALCON [Suspect]
     Indication: PHOTOREFRACTIVE KERATECTOMY
     Dates: start: 20080403, end: 20080408

REACTIONS (11)
  - ACTIVITIES OF DAILY LIVING IMPAIRED [None]
  - BLINDNESS [None]
  - CORNEAL SCAR [None]
  - ECONOMIC PROBLEM [None]
  - EYE IRRITATION [None]
  - EYE PAIN [None]
  - EYE SWELLING [None]
  - IMPAIRED WORK ABILITY [None]
  - INJURY CORNEAL [None]
  - OCULAR HYPERAEMIA [None]
  - PAIN [None]
